FAERS Safety Report 6210319-X (Version None)
Quarter: 2009Q2

REPORT INFORMATION
  Report Type: 
  Country: None (occurrence: None)
  Receive Date: 20090529
  Receipt Date: 20090529
  Transmission Date: 20091009
  Serious: Yes (Hospitalization)
  Sender: FDA-Public Use
  Company Number: None

PATIENT
  Age: 39 Year
  Sex: Female

DRUGS (2)
  1. DEFINITY [Suspect]
     Indication: CARDIAC STRESS TEST
     Dosage: UNKNOWN IV
     Route: 042
     Dates: start: 20090521, end: 20090521
  2. DOBUTAMINE HCL [Suspect]
     Indication: CARDIAC STRESS TEST
     Dosage: UNKNOWN IV
     Route: 042
     Dates: start: 20090521, end: 20090521

REACTIONS (13)
  - ANXIETY [None]
  - BRADYCARDIA [None]
  - CHEST PAIN [None]
  - ERYTHEMA [None]
  - FACE OEDEMA [None]
  - HYPOTENSION [None]
  - LIP SWELLING [None]
  - LOSS OF CONSCIOUSNESS [None]
  - PARAESTHESIA [None]
  - PROCEDURAL COMPLICATION [None]
  - PRURITUS [None]
  - RASH [None]
  - THROAT TIGHTNESS [None]
